FAERS Safety Report 19096569 (Version 1)
Quarter: 2021Q2

REPORT INFORMATION
  Report Type: Spontaneous
  Country: US (occurrence: US)
  Receive Date: 20210405
  Receipt Date: 20210405
  Transmission Date: 20210717
  Serious: No
  Sender: FDA-Public Use
  Company Number: None

PATIENT
  Age: 69 Year
  Sex: Male
  Weight: 90.7 kg

DRUGS (1)
  1. GAMUNEX?C [Suspect]
     Active Substance: HUMAN IMMUNOGLOBULIN G
     Indication: POLYMYOSITIS
     Dosage: ?          OTHER FREQUENCY:EVERY 3 WEEKS X 4;?
     Route: 041
     Dates: start: 20210323, end: 20210323

REACTIONS (5)
  - Urticaria [None]
  - Soft tissue swelling [None]
  - Pruritus [None]
  - Erythema [None]
  - Hypertension [None]

NARRATIVE: CASE EVENT DATE: 20210324
